FAERS Safety Report 15970708 (Version 2)
Quarter: 2019Q2

REPORT INFORMATION
  Report Type: Spontaneous
  Country: GB (occurrence: GB)
  Receive Date: 20190215
  Receipt Date: 20190402
  Transmission Date: 20190711
  Serious: Yes (Hospitalization)
  Sender: FDA-Public Use
  Company Number: GB-MYLANLABS-2019M1015014

PATIENT
  Age: 35 Year
  Sex: Male

DRUGS (3)
  1. CLOZARIL [Suspect]
     Active Substance: CLOZAPINE
     Indication: SCHIZOPHRENIA
     Dosage: UNK
     Route: 048
     Dates: start: 20100226
  2. CLOZARIL [Suspect]
     Active Substance: CLOZAPINE
     Dosage: 50 MILLIGRAM, AM
     Route: 048
     Dates: start: 20100226
  3. CLOZARIL [Suspect]
     Active Substance: CLOZAPINE
     Dosage: 325 MILLIGRAM, PM
     Route: 048
     Dates: start: 20100226

REACTIONS (1)
  - Diabetic ketoacidosis [Recovered/Resolved]
